FAERS Safety Report 21752845 (Version 1)
Quarter: 2022Q4

REPORT INFORMATION
  Report Type: Spontaneous
  Country: FR (occurrence: FR)
  Receive Date: 20221220
  Receipt Date: 20221220
  Transmission Date: 20230113
  Serious: Yes (Other)
  Sender: FDA-Public Use
  Company Number: FR-CHEPLA-2022011619

PATIENT
  Age: 66 Year
  Sex: Female

DRUGS (3)
  1. AMOXICILLIN [Suspect]
     Active Substance: AMOXICILLIN
     Indication: Product used for unknown indication
     Dosage: UNK
     Route: 065
  2. OXYBUTYNIN [Suspect]
     Active Substance: OXYBUTYNIN
     Indication: Hyperhidrosis
     Dosage: 2 DOSAGE FORM, ONCE A DAY (TWO TABLETS PER DAY)
     Route: 065
     Dates: start: 2012
  3. OXYBUTYNIN [Suspect]
     Active Substance: OXYBUTYNIN
     Dosage: 2 DOSAGE FORM, ONCE A DAY (TWO TABLETS PER DAY)
     Route: 065
     Dates: start: 2012

REACTIONS (2)
  - Toxic skin eruption [Recovered/Resolved]
  - Product use in unapproved indication [Recovered/Resolved]

NARRATIVE: CASE EVENT DATE: 20120101
